FAERS Safety Report 4879629-2 (Version None)
Quarter: 2006Q1

REPORT INFORMATION
  Report Type: 
  Country: None (occurrence: None)
  Receive Date: 20060113
  Receipt Date: 20060107
  Transmission Date: 20060701
  Serious: Yes (Death)
  Sender: FDA-Public Use
  Company Number: US-AVENTIS-200610258GDDC

PATIENT
  Age: 57 Year
  Sex: Male
  Weight: 106.4 kg

DRUGS (45)
  1. LANTUS [Suspect]
     Indication: DIABETES MELLITUS
     Dosage: DOSE UNIT: UNITS
     Route: 058
     Dates: start: 20020111
  2. LEVOTHROID [Concomitant]
     Indication: HYPOTHYROIDISM
     Route: 048
     Dates: start: 19890101
  3. LESCOL [Concomitant]
     Indication: HYPERCHOLESTEROLAEMIA
     Route: 048
     Dates: start: 19890101
  4. LIPITOR [Concomitant]
     Indication: BLOOD CHOLESTEROL INCREASED
     Route: 048
     Dates: start: 20020201, end: 20020412
  5. AMITRIPTYLINE HCL [Concomitant]
     Indication: PAIN IN EXTREMITY
     Route: 048
     Dates: start: 20020301, end: 20020501
  6. LOTENSIN [Concomitant]
     Indication: HYPERTENSION
     Route: 048
     Dates: start: 20020301
  7. REMICADE [Concomitant]
     Indication: ARTHRITIS
     Route: 042
     Dates: start: 20020618
  8. ULTRACET [Concomitant]
     Indication: ARTHRITIS
     Dosage: DOSE: 37.5/325
     Route: 048
     Dates: start: 20020201, end: 20020401
  9. ULTRACET [Concomitant]
     Route: 048
     Dates: start: 20020402, end: 20050403
  10. LASIX [Concomitant]
     Indication: SWELLING
     Route: 048
     Dates: start: 20020517, end: 20020701
  11. LASIX [Concomitant]
     Route: 048
     Dates: start: 20020705, end: 20040314
  12. LASIX [Concomitant]
     Route: 048
     Dates: start: 20040315
  13. KCL ER [Concomitant]
     Indication: PROPHYLAXIS
     Route: 048
     Dates: start: 20040727
  14. PROPOXY N [Concomitant]
     Indication: BACK PAIN
     Route: 048
     Dates: start: 20020502
  15. PREDNISONE [Concomitant]
     Indication: ARTHRALGIA
     Route: 048
     Dates: start: 20000101, end: 20020601
  16. PREDNISONE [Concomitant]
     Route: 048
     Dates: start: 20040727, end: 20041005
  17. PREDNISONE [Concomitant]
     Route: 048
     Dates: start: 20041006
  18. PREDNISONE [Concomitant]
     Indication: BACK PAIN
     Route: 048
     Dates: start: 20000101, end: 20020601
  19. PREDNISONE [Concomitant]
     Route: 048
     Dates: start: 20040727, end: 20041005
  20. PREDNISONE [Concomitant]
     Route: 048
     Dates: start: 20041006
  21. HYDROCODONE BITARTRATE [Concomitant]
     Indication: PAIN IN EXTREMITY
     Route: 048
     Dates: start: 20030501
  22. WELCHOL [Concomitant]
     Indication: BLOOD CHOLESTEROL INCREASED
     Route: 048
     Dates: start: 20020413
  23. METFORMIN [Concomitant]
     Dates: start: 20010402
  24. NOVOLIN 70/30 [Concomitant]
     Indication: DIABETES MELLITUS
     Route: 030
     Dates: start: 19990101, end: 20020111
  25. NOVOLIN 70/30 [Concomitant]
     Route: 030
     Dates: start: 19990101, end: 20020111
  26. NOVOLIN R [Concomitant]
     Indication: DIABETES MELLITUS
     Route: 030
     Dates: start: 19990101, end: 20020111
  27. NAPROXEN [Concomitant]
     Indication: ARTHRITIS
     Route: 048
     Dates: start: 20000101, end: 20020709
  28. HYDROCHLOROTHIAZIDE [Concomitant]
     Indication: SWELLING
     Route: 048
     Dates: start: 20010817, end: 20020516
  29. ACETAMINOPHEN [Concomitant]
     Indication: UPPER RESPIRATORY TRACT INFECTION
     Route: 048
     Dates: start: 20020208, end: 20020704
  30. METHOTREXATE [Concomitant]
     Indication: ARTHRITIS
     Route: 048
     Dates: start: 20020201, end: 20030715
  31. METHOTREXATE [Concomitant]
     Route: 048
     Dates: start: 20040727
  32. ASPIRIN [Concomitant]
     Indication: ARTHRITIS
     Route: 048
     Dates: start: 20020315, end: 20020709
  33. FLU SHOT [Concomitant]
     Indication: PROPHYLAXIS
     Route: 030
     Dates: start: 20021023, end: 20021023
  34. KLOR-CON [Concomitant]
     Indication: SWELLING
     Route: 048
     Dates: start: 20020517, end: 20020701
  35. LEVAQUIN [Concomitant]
     Indication: PNEUMONIA
     Route: 048
     Dates: start: 20040102, end: 20040112
  36. MUCINEX [Concomitant]
     Indication: PNEUMONIA
     Route: 048
     Dates: start: 20040102, end: 20040110
  37. TRICOR [Concomitant]
     Indication: BLOOD CHOLESTEROL INCREASED
     Route: 048
     Dates: start: 20020601
  38. CEPHALEXIN [Concomitant]
     Indication: POSTOPERATIVE WOUND INFECTION
     Route: 048
     Dates: start: 20020730, end: 20020815
  39. AMOXICILLIN [Concomitant]
     Indication: ARTHROPOD BITE
     Route: 048
     Dates: start: 20040816, end: 20040827
  40. AVELOX [Concomitant]
     Indication: ARTHROPOD BITE
     Route: 048
     Dates: start: 20040827, end: 20040902
  41. FOLIC ACID [Concomitant]
     Route: 048
     Dates: start: 20040727
  42. LOVENOX [Concomitant]
  43. DEMEROL [Concomitant]
  44. ZYRTEC [Concomitant]
     Indication: PROPHYLAXIS
     Route: 048
     Dates: start: 20040901
  45. CITALOPRAM HYDROBROMIDE [Concomitant]
     Indication: DEPRESSION
     Route: 048
     Dates: start: 20050201

REACTIONS (1)
  - DEATH [None]
